FAERS Safety Report 9785389 (Version 2)
Quarter: 2014Q1

REPORT INFORMATION
  Report Type: Spontaneous
  Country: FR (occurrence: FR)
  Receive Date: 20131227
  Receipt Date: 20140114
  Transmission Date: 20141002
  Serious: Yes (Hospitalization)
  Sender: FDA-Public Use
  Company Number: FR-ASTRAZENECA-2013SE93211

PATIENT
  Age: 31829 Day
  Sex: Female

DRUGS (14)
  1. CRESTOR [Suspect]
     Indication: DYSLIPIDAEMIA
     Route: 048
     Dates: start: 20131002, end: 20131125
  2. KARDEGIC [Concomitant]
  3. APROVEL [Concomitant]
  4. RISPERDAL ORO [Concomitant]
     Route: 048
  5. SPECIAFOLDINE [Concomitant]
  6. MIANSERINE [Concomitant]
  7. MOVICOL [Concomitant]
  8. ALPRAZOLAM [Concomitant]
  9. IXPRIM [Concomitant]
  10. SERETIDE DISKUS [Concomitant]
     Dosage: 500 MCG/50 MCG 2 PUFFS EVERY DAY
  11. SINGULAIR [Concomitant]
  12. LOVENOX [Concomitant]
  13. BRICANYL [Concomitant]
  14. ATROVENT [Concomitant]

REACTIONS (1)
  - Asthma [Recovering/Resolving]
